FAERS Safety Report 20208510 (Version 1)
Quarter: 2021Q4

REPORT INFORMATION
  Report Type: Spontaneous
  Country: US (occurrence: None)
  Receive Date: 20211220
  Receipt Date: 20211220
  Transmission Date: 20220304
  Serious: Yes (Hospitalization)
  Sender: FDA-Public Use
  Company Number: None

PATIENT
  Age: 39 Year
  Sex: Female

DRUGS (2)
  1. XOLAIR [Suspect]
     Active Substance: OMALIZUMAB
     Indication: Urticaria
     Dosage: FREQUENCY : MONTHLY;?
     Route: 058
     Dates: start: 20181204
  2. XOLAIR [Suspect]
     Active Substance: OMALIZUMAB
     Dosage: FREQUENCY : MONTHLY;?
     Route: 011

REACTIONS (1)
  - Urticaria [None]

NARRATIVE: CASE EVENT DATE: 20211218
